FAERS Safety Report 4491454-3 (Version None)
Quarter: 2004Q4

REPORT INFORMATION
  Report Type: 
  Country: None (occurrence: None)
  Receive Date: 20041102
  Receipt Date: 20040902
  Transmission Date: 20050328
  Serious: Yes (Hospitalization, Other)
  Sender: FDA-Public Use
  Company Number: 2004S1002742

PATIENT
  Age: 57 Year
  Sex: Male
  Weight: 79.3795 kg

DRUGS (5)
  1. LORAZEPAM [Suspect]
     Indication: ALCOHOL DETOXIFICATION
     Dosage: 2MG Q 2 HOURS PRN, ORAL
     Route: 048
     Dates: start: 20040829, end: 20040830
  2. HYDROXYZINE [Concomitant]
  3. MULTI-VITAMIN [Concomitant]
  4. THIAMINE [Concomitant]
  5. INSULIN SLIDING SCALE [Concomitant]

REACTIONS (3)
  - DELIRIUM [None]
  - HALLUCINATION [None]
  - TREMOR [None]
